FAERS Safety Report 9202405 (Version 1)
Quarter: 2013Q2

REPORT INFORMATION
  Report Type: Spontaneous
  Country: ES (occurrence: ES)
  Receive Date: 20130401
  Receipt Date: 20130401
  Transmission Date: 20140414
  Serious: Yes (Life-Threatening)
  Sender: FDA-Public Use
  Company Number: ES-COVIDIEN/TYCO HEALTHCARE/MALLINCKRODT-T201301366

PATIENT
  Age: 83 Year
  Sex: Female

DRUGS (3)
  1. OPTIRAY [Suspect]
     Indication: COMPUTERISED TOMOGRAM
  2. IMIPENEM [Suspect]
     Indication: PANCREATITIS ACUTE
  3. AMIKACIN [Concomitant]
     Indication: PANCREATITIS ACUTE

REACTIONS (1)
  - Drug reaction with eosinophilia and systemic symptoms [Unknown]
